FAERS Safety Report 10183235 (Version 2)
Quarter: 2014Q2

REPORT INFORMATION
  Report Type: Spontaneous
  Country: US (occurrence: None)
  Receive Date: 20140416
  Receipt Date: 20140604
  Transmission Date: 20141212
  Serious: No
  Sender: FDA-Public Use
  Company Number: 163-POMAL-13114602

PATIENT
  Age: 74 Year
  Sex: Male

DRUGS (1)
  1. POMALYST (POMALIDOMIDE) (3 MILLIGRAM, CAPSULES) [Suspect]
     Indication: PLASMA CELL MYELOMA
     Route: 048
     Dates: start: 201310

REACTIONS (4)
  - Vision blurred [None]
  - Pain in extremity [None]
  - Muscle spasms [None]
  - Paraesthesia [None]
